FAERS Safety Report 12777476 (Version 2)
Quarter: 2020Q2

REPORT INFORMATION
  Report Type: Spontaneous
  Country: US (occurrence: US)
  Receive Date: 20160924
  Receipt Date: 20200521
  Transmission Date: 20200713
  Serious: Yes (Other)
  Sender: FDA-Public Use
  Company Number: US-TEVA-595975USA

PATIENT
  Sex: Female
  Weight: 48.58 kg

DRUGS (4)
  1. CLONAZEPAM. [Suspect]
     Active Substance: CLONAZEPAM
     Indication: DEPRESSION
  2. ANAGRELIDE. [Suspect]
     Active Substance: ANAGRELIDE HYDROCHLORIDE
     Indication: THROMBOCYTOPENIA
     Dosage: 4 MILLIGRAM DAILY;
     Route: 065
  3. CLONAZEPAM. [Suspect]
     Active Substance: CLONAZEPAM
     Indication: ANXIETY
     Route: 065
     Dates: start: 201507
  4. PAXIL [Concomitant]
     Active Substance: PAROXETINE HYDROCHLORIDE
     Indication: OBSESSIVE-COMPULSIVE DISORDER

REACTIONS (13)
  - Headache [Unknown]
  - Dry mouth [Unknown]
  - Oral disorder [Unknown]
  - Slow speech [Unknown]
  - Drooling [Unknown]
  - Gait disturbance [Unknown]
  - Palpitations [Unknown]
  - Abnormal behaviour [Unknown]
  - Dysarthria [Unknown]
  - Migraine [Unknown]
  - Limb discomfort [Unknown]
  - Hallucination [Unknown]
  - Tremor [Unknown]
